FAERS Safety Report 9357491 (Version 1)
Quarter: 2013Q2

REPORT INFORMATION
  Report Type: Report from Study
  Country: BD (occurrence: BD)
  Receive Date: 20130620
  Receipt Date: 20130620
  Transmission Date: 20140414
  Serious: Yes (Death, Hospitalization)
  Sender: FDA-Public Use
  Company Number: PHHY2013BD062386

PATIENT
  Age: 80 Year
  Sex: Male

DRUGS (1)
  1. EXELON PATCH [Suspect]
     Indication: DEMENTIA
     Dosage: 4.6 MG (5 CM) DAILY
     Route: 062
     Dates: start: 201002

REACTIONS (6)
  - Cardiac disorder [Fatal]
  - Lung disorder [Fatal]
  - Urinary tract infection [Fatal]
  - Blood urine present [Fatal]
  - Hypophagia [Unknown]
  - Electrolyte imbalance [Unknown]
